FAERS Safety Report 12073753 (Version 1)
Quarter: 2016Q1

REPORT INFORMATION
  Report Type: Spontaneous
  Country: IT (occurrence: IT)
  Receive Date: 20160212
  Receipt Date: 20160212
  Transmission Date: 20160526
  Serious: Yes (Other)
  Sender: FDA-Public Use
  Company Number: IT-TEVA-633372ACC

PATIENT
  Age: 43 Year
  Sex: Female
  Weight: 73 kg

DRUGS (2)
  1. RAMIPRIL. [Concomitant]
     Active Substance: RAMIPRIL
     Indication: PRODUCT USED FOR UNKNOWN INDICATION
     Dosage: 10 MG
     Route: 048
  2. CARVEDILOL. [Suspect]
     Active Substance: CARVEDILOL
     Indication: HYPERTENSION
     Dosage: 12.5 MILLIGRAM DAILY; 12.5 MG DAILY
     Route: 048
     Dates: end: 20160127

REACTIONS (3)
  - Palpitations [Recovering/Resolving]
  - Abdominal pain upper [Recovering/Resolving]
  - Ventricular extrasystoles [Unknown]

NARRATIVE: CASE EVENT DATE: 20160127
